FAERS Safety Report 20872657 (Version 1)
Quarter: 2022Q2

REPORT INFORMATION
  Report Type: Spontaneous
  Country: FR (occurrence: FR)
  Receive Date: 20220525
  Receipt Date: 20220525
  Transmission Date: 20220721
  Serious: Yes (Hospitalization)
  Sender: FDA-Public Use
  Company Number: None

PATIENT
  Age: 50 Year
  Sex: Male

DRUGS (6)
  1. ALPRAZOLAM [Suspect]
     Active Substance: ALPRAZOLAM
     Dosage: UNK
  2. VENLAFAXINE HCL [Suspect]
     Active Substance: VENLAFAXINE HYDROCHLORIDE
     Dosage: UNK
  3. COCAINE [Suspect]
     Active Substance: COCAINE
     Dosage: UNK
  4. DIAZEPAM [Suspect]
     Active Substance: DIAZEPAM
     Dosage: UNK
  5. AMISULPRIDE [Suspect]
     Active Substance: AMISULPRIDE
     Dosage: UNK
  6. PROPRANOLOL [Suspect]
     Active Substance: PROPRANOLOL HYDROCHLORIDE
     Dosage: UNK

REACTIONS (6)
  - Electrocardiogram QT prolonged [Unknown]
  - Sinus bradycardia [Unknown]
  - Blood pressure decreased [Unknown]
  - Drug abuse [Unknown]
  - Headache [Unknown]
  - Feeling drunk [Unknown]
